FAERS Safety Report 16672625 (Version 2)
Quarter: 2019Q3

REPORT INFORMATION
  Report Type: Spontaneous
  Country: DE (occurrence: DE)
  Receive Date: 20190806
  Receipt Date: 20190809
  Transmission Date: 20191004
  Serious: Yes (Life-Threatening, Hospitalization, Disabling, Other)
  Sender: FDA-Public Use
  Company Number: DE-ACCORD-150332

PATIENT
  Age: 64 Year
  Sex: Female
  Weight: 97 kg

DRUGS (10)
  1. DEXAMETHASONE. [Concomitant]
     Active Substance: DEXAMETHASONE
     Indication: PREMEDICATION
     Dosage: STRENGTH: 4 MG
     Route: 042
  2. GLUCOSE/GLUCOSE MONOHYDRATE/GLUCOSE OXIDASE [Concomitant]
  3. MOXONIDINE [Concomitant]
     Active Substance: MOXONIDINE
     Dosage: STRENGTH: 0.3 MG, 0-1-0
     Route: 048
  4. CARVEDILOL/CARVEDILOL HYDROCHLODRIDE [Concomitant]
     Dosage: STRENGTH: 12.5 MG, 1-1-1
  5. DOXACOR [Concomitant]
     Dosage: STRENGTH: 4 MG, 0-0-1
  6. CARBOPLATIN ACCORD [Suspect]
     Active Substance: CARBOPLATIN
     Indication: PALLIATIVE CARE
     Dosage: ANC4 520 MG(STRENGTH-450MG)
  7. HOMVIOTENSIN [Concomitant]
     Dosage: 1-0-0
  8. MOXONIDINE [Concomitant]
     Active Substance: MOXONIDINE
     Dosage: STRENGTH: 0.3 MG, 0-1-0
     Route: 048
  9. EXFORGE [Concomitant]
     Active Substance: AMLODIPINE BESYLATE\VALSARTAN
     Dosage: AMLODIPINE: 10MG, HYDROCHLOROTHIAZIDE: 25 MG, VALSARTAN: 320 MG,1-0-0
     Route: 048
  10. ONDANSETRON [Concomitant]
     Active Substance: ONDANSETRON
     Indication: PREMEDICATION
     Dosage: STRENGTH: 8 MG
     Route: 042

REACTIONS (9)
  - Cardiac arrest [Recovered/Resolved with Sequelae]
  - Nausea [Unknown]
  - Circulatory collapse [Unknown]
  - Apallic syndrome [Not Recovered/Not Resolved]
  - Respiratory arrest [Recovered/Resolved with Sequelae]
  - Brain injury [Not Recovered/Not Resolved]
  - Hypoxia [Unknown]
  - Cyanosis [Unknown]
  - Infusion related reaction [Recovered/Resolved with Sequelae]

NARRATIVE: CASE EVENT DATE: 20190718
